FAERS Safety Report 13358792 (Version 1)
Quarter: 2017Q1

REPORT INFORMATION
  Report Type: Spontaneous
  Country: GB (occurrence: GB)
  Receive Date: 20170322
  Receipt Date: 20170322
  Transmission Date: 20170429
  Serious: Yes (Other)
  Sender: FDA-Public Use
  Company Number: PHHY2017GB037504

PATIENT
  Age: 66 Year
  Sex: Female
  Weight: 58.51 kg

DRUGS (2)
  1. CLARITHROMYCIN. [Suspect]
     Active Substance: CLARITHROMYCIN
     Indication: SINUSITIS
     Dosage: 1000 MG, UNK
     Route: 048
     Dates: start: 20170217
  2. OVESTIN [Concomitant]
     Active Substance: ESTRIOL
     Indication: PRODUCT USED FOR UNKNOWN INDICATION
     Route: 065

REACTIONS (5)
  - Flatulence [Recovered/Resolved]
  - Tongue discolouration [Unknown]
  - Dry throat [Recovered/Resolved with Sequelae]
  - Breath odour [Unknown]
  - Dysgeusia [Recovering/Resolving]

NARRATIVE: CASE EVENT DATE: 20170218
